FAERS Safety Report 4733565-0 (Version None)
Quarter: 2005Q3

REPORT INFORMATION
  Report Type: 
  Country: None (occurrence: None)
  Receive Date: 20050803
  Receipt Date: 20050803
  Transmission Date: 20060218
  Serious: No
  Sender: FDA-Public Use
  Company Number: None

PATIENT
  Age: 79 Year
  Sex: Female
  Weight: 81.6475 kg

DRUGS (1)
  1. ACTONEL [Suspect]
     Indication: OSTEOPOROSIS
     Dosage: 35 MGM WEEKLY
     Dates: end: 20050301

REACTIONS (4)
  - ARTHROPATHY [None]
  - DRUG DOSE OMISSION [None]
  - MUSCLE SPASMS [None]
  - MYALGIA [None]
